FAERS Safety Report 8966857 (Version 1)
Quarter: 2012Q4

REPORT INFORMATION
  Report Type: 
  Country: SA (occurrence: SA)
  Receive Date: 20121217
  Receipt Date: 20121217
  Transmission Date: 20130627
  Serious: Yes (Death)
  Sender: FDA-Public Use
  Company Number: PHHY2012SA115606

PATIENT

DRUGS (1)
  1. DICLOFENAC [Suspect]
     Indication: BACK PAIN

REACTIONS (1)
  - Angina pectoris [Fatal]
